FAERS Safety Report 14280799 (Version 1)
Quarter: 2017Q4

REPORT INFORMATION
  Report Type: Spontaneous
  Country: US (occurrence: US)
  Receive Date: 20171213
  Receipt Date: 20171213
  Transmission Date: 20180321
  Serious: Yes (Hospitalization, Other)
  Sender: FDA-Public Use
  Company Number: None

PATIENT
  Age: 46 Year
  Sex: Female
  Weight: 76.5 kg

DRUGS (18)
  1. FERROUS SULFATE. [Concomitant]
     Active Substance: FERROUS SULFATE
  2. PREDNISONE. [Concomitant]
     Active Substance: PREDNISONE
  3. VOLTAREN [Concomitant]
     Active Substance: DICLOFENAC SODIUM
  4. MORPHINE [Concomitant]
     Active Substance: MORPHINE
  5. CLARITIN [Concomitant]
     Active Substance: LORATADINE
  6. VOLTAGE GEL [Concomitant]
  7. VITAMIN D [Concomitant]
     Active Substance: CHOLECALCIFEROL
  8. ECONAZOLE NITRATE. [Concomitant]
     Active Substance: ECONAZOLE NITRATE
  9. BENADRYL [Concomitant]
     Active Substance: DIPHENHYDRAMINE HYDROCHLORIDE
  10. TYLENOL [Concomitant]
     Active Substance: ACETAMINOPHEN
  11. EXCEDRIN [Concomitant]
     Active Substance: ACETAMINOPHEN\ASPIRIN\CAFFEINE
  12. ENTYVIO [Suspect]
     Active Substance: VEDOLIZUMAB
     Indication: CROHN^S DISEASE
     Dosage: ?          OTHER STRENGTH:?;?
     Route: 042
     Dates: start: 20170602, end: 20171019
  13. MAGNESIUM [Concomitant]
     Active Substance: MAGNESIUM
  14. TRIAMCINOLONE [Concomitant]
     Active Substance: TRIAMCINOLONE
  15. AMMONIA LACTATE [Concomitant]
  16. FLORICET PROMETHAZINE [Concomitant]
  17. FLONASE [Concomitant]
     Active Substance: FLUTICASONE PROPIONATE
  18. KETOROLAC [Concomitant]
     Active Substance: KETOROLAC\KETOROLAC TROMETHAMINE

REACTIONS (6)
  - Pyrexia [None]
  - Pruritus [None]
  - Rash [None]
  - Musculoskeletal stiffness [None]
  - Pain [None]
  - Arthralgia [None]

NARRATIVE: CASE EVENT DATE: 20170606
